FAERS Safety Report 18548094 (Version 1)
Quarter: 2020Q4

REPORT INFORMATION
  Report Type: Not Available
  Country: None (occurrence: None)
  Receive Date: 20201125
  Receipt Date: 20201125
  Transmission Date: 20210114
  Serious: No
  Sender: FDA-Public Use
  Company Number: US-AKORN PHARMACEUTICALS-2020AKN00186

PATIENT
  Age: 17 Year
  Sex: Male

DRUGS (1)
  1. MYORISAN [Suspect]
     Active Substance: ISOTRETINOIN

REACTIONS (5)
  - Pyrexia [Not Recovered/Not Resolved]
  - Illness [Not Recovered/Not Resolved]
  - Chills [Not Recovered/Not Resolved]
  - Skin discolouration [Not Recovered/Not Resolved]
  - Cough [Not Recovered/Not Resolved]
